FAERS Safety Report 6809447-7 (Version None)
Quarter: 2010Q2

REPORT INFORMATION
  Report Type: 
  Country: None (occurrence: None)
  Receive Date: 20100625
  Receipt Date: 20100621
  Transmission Date: 20101027
  Serious: Yes (Life-Threatening, Hospitalization)
  Sender: FDA-Public Use
  Company Number: 2010TJ0119

PATIENT
  Age: 37 Year
  Sex: Female

DRUGS (2)
  1. EPINEPHRINE [Suspect]
     Indication: ANAPHYLACTIC SHOCK
     Dosage: TWO DOSES OF .5 MG (DILUTED; 1:10,000), 5 MINUTES APART1MG (UNDILUTED; 1:1000), ONCE
  2. EPINEPHRINE [Suspect]
     Indication: ANAPHYLACTIC SHOCK

REACTIONS (5)
  - KOUNIS SYNDROME [None]
  - MYOCARDIAL ISCHAEMIA [None]
  - NO THERAPEUTIC RESPONSE [None]
  - OVERDOSE [None]
  - WRONG TECHNIQUE IN DRUG USAGE PROCESS [None]
